FAERS Safety Report 4365876-5 (Version None)
Quarter: 2004Q2

REPORT INFORMATION
  Report Type: 
  Country: None (occurrence: None)
  Receive Date: 20040526
  Receipt Date: 20040526
  Transmission Date: 20050107
  Serious: Yes (Life-Threatening, Hospitalization)
  Sender: FDA-Public Use
  Company Number: None

PATIENT
  Age: 29 Year
  Sex: Female

DRUGS (2)
  1. YASMIN [Suspect]
     Indication: CONTRACEPTION
     Dosage: DAILY AS DIRECTED
  2. YASMIN [Suspect]
     Indication: MENSTRUATION IRREGULAR
     Dosage: DAILY AS DIRECTED

REACTIONS (1)
  - PULMONARY EMBOLISM [None]
